FAERS Safety Report 6130327-7 (Version None)
Quarter: 2009Q1

REPORT INFORMATION
  Report Type: 
  Country: None (occurrence: None)
  Receive Date: 20090324
  Receipt Date: 20090320
  Transmission Date: 20090719
  Serious: Yes (Hospitalization)
  Sender: FDA-Public Use
  Company Number: US-ROXANE LABORATORIES, INC.-2009-RO-00271RO

PATIENT
  Age: 34 Year
  Sex: Male

DRUGS (11)
  1. METHADONE HCL [Suspect]
     Dosage: 100MG
     Route: 013
  2. HEPARIN [Concomitant]
  3. HEPARIN [Concomitant]
  4. DEXTRAN INJ [Concomitant]
  5. DEXAMETHASONE [Concomitant]
     Route: 042
  6. SODIUM BICARBONATE [Concomitant]
  7. HYDROMORPHONE HCL [Concomitant]
     Indication: PAIN
     Route: 042
  8. NIFEDIPINE [Concomitant]
     Route: 048
  9. COUMADIN [Concomitant]
  10. ENOXAPARIN [Concomitant]
     Indication: INTERNATIONAL NORMALISED RATIO DECREASED
  11. ANALGESIC [Concomitant]

REACTIONS (8)
  - BLOOD PRESSURE INCREASED [None]
  - CYANOSIS [None]
  - HYPOAESTHESIA [None]
  - INCORRECT ROUTE OF DRUG ADMINISTRATION [None]
  - PAIN [None]
  - PERIPHERAL ISCHAEMIA [None]
  - RHABDOMYOLYSIS [None]
  - SINUS TACHYCARDIA [None]
